FAERS Safety Report 8874426 (Version 2)
Quarter: 2012Q4

REPORT INFORMATION
  Report Type: 
  Country: JP (occurrence: JP)
  Receive Date: 20121031
  Receipt Date: 20121120
  Transmission Date: 20130627
  Serious: Yes (Other)
  Sender: FDA-Public Use
  Company Number: JP-009507513-2011SP051949

PATIENT
  Age: 61 Year
  Sex: Male

DRUGS (6)
  1. TEMODAL [Suspect]
     Indication: GLIOBLASTOMA
     Dosage: 75 mg/m2, qd
     Dates: start: 20090307
  2. TEMODAL [Suspect]
     Dosage: 150 mg/m2, qd
     Route: 048
     Dates: start: 20090613, end: 20090617
  3. TEMODAL [Suspect]
     Dosage: 200 mg/m2, qd
     Route: 048
     Dates: start: 20090722, end: 20090726
  4. VALPROATE SODIUM [Concomitant]
     Dosage: UNK, Formulation: POR (unspecified)
     Route: 048
  5. PROPRANOLOL HYDROCHLORIDE [Concomitant]
     Dosage: Daily dosage unknown
  6. FAMOTIDINE [Concomitant]
     Dosage: Daily dosage unknown

REACTIONS (3)
  - Immunosuppression [Unknown]
  - Hepatitis B [Recovering/Resolving]
  - Lymphocyte count decreased [Unknown]
